FAERS Safety Report 9714281 (Version 3)
Quarter: 2015Q3

REPORT INFORMATION
  Report Type: Spontaneous
  Country: US (occurrence: US)
  Receive Date: 20131126
  Receipt Date: 20150803
  Transmission Date: 20151125
  Serious: No
  Sender: FDA-Public Use
  Company Number: US-GILEAD-2008-0018908

PATIENT
  Age: 77 Year
  Sex: Female
  Weight: 57.61 kg

DRUGS (27)
  1. IRON [Concomitant]
     Active Substance: IRON
  2. BUMEX [Concomitant]
     Active Substance: BUMETANIDE
  3. NORVASC [Concomitant]
     Active Substance: AMLODIPINE BESYLATE
  4. MIRAPEX [Concomitant]
     Active Substance: PRAMIPEXOLE DIHYDROCHLORIDE
  5. VITAMIN C [Concomitant]
     Active Substance: ASCORBIC ACID
  6. BENADRYL [Concomitant]
     Active Substance: DIPHENHYDRAMINE HYDROCHLORIDE
  7. CALCIUM [Concomitant]
     Active Substance: CALCIUM
  8. PREDNISONE. [Concomitant]
     Active Substance: PREDNISONE
  9. CLONAZEPAM. [Concomitant]
     Active Substance: CLONAZEPAM
  10. MAGNESIUM CITRATE. [Concomitant]
     Active Substance: MAGNESIUM CITRATE
  11. LISINOPRIL. [Concomitant]
     Active Substance: LISINOPRIL
  12. MULTIVITAMIN [Concomitant]
     Active Substance: VITAMINS
  13. LEVOXYL [Concomitant]
     Active Substance: LEVOTHYROXINE SODIUM
  14. ACTONEL [Concomitant]
     Active Substance: RISEDRONATE SODIUM
  15. AMBIEN [Concomitant]
     Active Substance: ZOLPIDEM TARTRATE
  16. ASPIRIN. [Concomitant]
     Active Substance: ASPIRIN
  17. GLUCOSAMINE CHONDROITIN [Concomitant]
     Active Substance: CHONDROITIN SULFATE (BOVINE)\GLUCOSAMINE HYDROCHLORIDE
  18. REVATIO [Concomitant]
     Active Substance: SILDENAFIL CITRATE
  19. AZATHIOPRINE. [Concomitant]
     Active Substance: AZATHIOPRINE
  20. MEDROL [Concomitant]
     Active Substance: METHYLPREDNISOLONE
  21. LETAIRIS [Suspect]
     Active Substance: AMBRISENTAN
     Indication: PULMONARY ARTERIAL HYPERTENSION
     Route: 048
     Dates: start: 20080214
  22. SYNTHROID [Concomitant]
     Active Substance: LEVOTHYROXINE SODIUM
  23. FISH OIL [Concomitant]
     Active Substance: FISH OIL
  24. PROTONIX [Concomitant]
     Active Substance: PANTOPRAZOLE SODIUM
  25. NASACORT [Concomitant]
     Active Substance: TRIAMCINOLONE ACETONIDE
  26. METHOTREXATE [Concomitant]
     Active Substance: METHOTREXATE
  27. FOLIC ACID. [Concomitant]
     Active Substance: FOLIC ACID

REACTIONS (1)
  - Memory impairment [Unknown]
